FAERS Safety Report 9601358 (Version 5)
Quarter: 2013Q4

REPORT INFORMATION
  Report Type: Report from Study
  Country: CA (occurrence: CA)
  Receive Date: 20131007
  Receipt Date: 20131022
  Transmission Date: 20140711
  Serious: Yes (Hospitalization)
  Sender: FDA-Public Use
  Company Number: CA-ROCHE-1177733

PATIENT
  Age: 63 Year
  Sex: Female
  Weight: 65 kg

DRUGS (14)
  1. AVASTIN [Suspect]
     Indication: GLIOBLASTOMA
     Route: 042
     Dates: start: 20120615, end: 20130909
  2. AVASTIN [Suspect]
     Route: 042
     Dates: start: 20120813
  3. AVASTIN [Suspect]
     Route: 042
     Dates: start: 20121009
  4. AVASTIN [Suspect]
     Route: 042
     Dates: start: 20130207
  5. AVASTIN [Suspect]
     Route: 042
     Dates: start: 20130603
  6. AVASTIN [Suspect]
     Route: 042
     Dates: start: 20130925
  7. LOVENOX [Concomitant]
  8. KEPPRA [Concomitant]
     Indication: CONVULSION
     Route: 048
  9. METFORMIN [Concomitant]
     Indication: DIABETES MELLITUS
     Route: 048
  10. BISOPROLOL [Concomitant]
  11. RANITIDINE [Concomitant]
  12. VOTRIENT [Concomitant]
  13. SODIUM PHENYLBUTYRATE [Concomitant]
  14. CCNU [Concomitant]
     Indication: NEOPLASM PROGRESSION
     Route: 048
     Dates: start: 20130925

REACTIONS (11)
  - Cerebrovascular accident [Unknown]
  - Abasia [Unknown]
  - Blood pressure diastolic decreased [Recovering/Resolving]
  - Red cell distribution width increased [Unknown]
  - White blood cell count decreased [Unknown]
  - Platelet count decreased [Recovering/Resolving]
  - Neutrophil count decreased [Unknown]
  - Weight decreased [Not Recovered/Not Resolved]
  - Eosinophil count decreased [Unknown]
  - Mean cell haemoglobin concentration decreased [Recovered/Resolved]
  - Drug dose omission [Unknown]
